FAERS Safety Report 11416636 (Version 5)
Quarter: 2015Q4

REPORT INFORMATION
  Report Type: Report from Study
  Country: DE (occurrence: DE)
  Receive Date: 20150825
  Receipt Date: 20151119
  Transmission Date: 20160304
  Serious: Yes (Hospitalization)
  Sender: FDA-Public Use
  Company Number: DE-EISAI MEDICAL RESEARCH-EC-2015-009404

PATIENT
  Age: 55 Year
  Sex: Male
  Weight: 82 kg

DRUGS (9)
  1. LENVATINIB [Suspect]
     Active Substance: LENVATINIB
     Indication: HEPATOCELLULAR CARCINOMA
     Route: 048
     Dates: start: 20150730, end: 20150819
  2. PARACETAMOL [Concomitant]
     Active Substance: ACETAMINOPHEN
  3. MOVICOL [Concomitant]
     Active Substance: POLYETHYLENE GLYCOL 3350\POTASSIUM CHLORIDE\SODIUM BICARBONATE\SODIUM CHLORIDE
  4. TILIDINE [Concomitant]
     Active Substance: TILIDINE
  5. ZOPICLONE [Concomitant]
     Active Substance: ZOPICLONE
  6. MCP [Concomitant]
     Active Substance: METOCLOPRAMIDE HYDROCHLORIDE
  7. PALLADON [Suspect]
     Active Substance: HYDROMORPHONE
     Indication: BONE PAIN
     Route: 048
     Dates: start: 20150803, end: 20150819
  8. LENVATINIB [Suspect]
     Active Substance: LENVATINIB
     Route: 048
     Dates: start: 20150827
  9. GABAPENTIN. [Concomitant]
     Active Substance: GABAPENTIN

REACTIONS (3)
  - Disturbance in attention [Recovered/Resolved]
  - Metastases to bone [Recovered/Resolved]
  - Pain [Recovered/Resolved]

NARRATIVE: CASE EVENT DATE: 20150803
